FAERS Safety Report 5762021-6 (Version None)
Quarter: 2008Q2

REPORT INFORMATION
  Report Type: 
  Country: None (occurrence: None)
  Receive Date: 20080607
  Receipt Date: 20080529
  Transmission Date: 20081010
  Serious: Yes (Death, Hospitalization)
  Sender: FDA-Public Use
  Company Number: JP-AMGEN-US285206

PATIENT
  Age: 57 Year
  Sex: Male

DRUGS (8)
  1. ENBREL [Suspect]
     Indication: RHEUMATOID ARTHRITIS
     Route: 058
     Dates: start: 20070320, end: 20071204
  2. NEORAL [Concomitant]
     Dosage: UNKNOWN
     Route: 048
  3. GLEEVEC [Concomitant]
     Route: 065
  4. PREDONINE [Concomitant]
     Dosage: UNKNOWN
     Route: 042
  5. ROCEPHIN [Concomitant]
     Dosage: UNKNOWN
     Route: 042
  6. HEPARIN [Concomitant]
     Dosage: UNKNOWN
     Route: 042
  7. SULFAMETHOXAZOLE AND TRIMETHOPRIM [Concomitant]
     Dosage: UNKNOWN
     Route: 048
  8. RESLIN [Concomitant]
     Dosage: UNKNOWN
     Route: 048

REACTIONS (2)
  - INTERSTITIAL LUNG DISEASE [None]
  - KNEE ARTHROPLASTY [None]
